FAERS Safety Report 7432175-4 (Version None)
Quarter: 2011Q2

REPORT INFORMATION
  Report Type: 
  Country: None (occurrence: None)
  Receive Date: 20110422
  Receipt Date: 20110415
  Transmission Date: 20111010
  Serious: Yes (Hospitalization)
  Sender: FDA-Public Use
  Company Number: SE-JNJFOC-20110407104

PATIENT
  Sex: Male

DRUGS (3)
  1. ROACCUTAN [Suspect]
     Indication: PRODUCT USED FOR UNKNOWN INDICATION
     Route: 048
  2. IPREN [Suspect]
     Indication: GROWING PAINS
     Route: 048
  3. PREDNISOLONE [Concomitant]
     Route: 048

REACTIONS (3)
  - VASCULITIS [None]
  - ACNE [None]
  - SACROILIITIS [None]
